FAERS Safety Report 25618462 (Version 3)
Quarter: 2025Q3

REPORT INFORMATION
  Report Type: Spontaneous
  Country: US (occurrence: US)
  Receive Date: 20250729
  Receipt Date: 20250801
  Transmission Date: 20251020
  Serious: Yes (Hospitalization)
  Sender: PFIZER
  Company Number: US-PFIZER INC-202500151263

PATIENT
  Age: 65 Year
  Sex: Male

DRUGS (2)
  1. LORBRENA [Suspect]
     Active Substance: LORLATINIB
     Dates: start: 20250715
  2. SINEMET [Suspect]
     Active Substance: CARBIDOPA\LEVODOPA

REACTIONS (3)
  - Aphasia [Unknown]
  - Hemiparesis [Unknown]
  - Dyskinesia [Unknown]

NARRATIVE: CASE EVENT DATE: 20250720
